FAERS Safety Report 13646063 (Version 14)
Quarter: 2018Q3

REPORT INFORMATION
  Report Type: Report from Study
  Country: US (occurrence: US)
  Receive Date: 20170613
  Receipt Date: 20180821
  Transmission Date: 20181010
  Serious: Yes (Death, Hospitalization, Other)
  Sender: FDA-Public Use
  Company Number: US-ROCHE-1942180

PATIENT
  Age: 55 Year
  Sex: Female
  Weight: 68.9 kg

DRUGS (26)
  1. DALFAMPRIDINE. [Suspect]
     Active Substance: DALFAMPRIDINE
     Indication: PRODUCT USED FOR UNKNOWN INDICATION
     Dosage: 5YEARS
     Route: 065
     Dates: start: 200612, end: 201209
  2. DALFAMPRIDINE. [Suspect]
     Active Substance: DALFAMPRIDINE
     Dosage: 3YEARS
     Route: 065
     Dates: start: 20131212, end: 20170316
  3. AMPYRA [Concomitant]
     Active Substance: DALFAMPRIDINE
     Route: 065
  4. ACYCLOVIR. [Concomitant]
     Active Substance: ACYCLOVIR
  5. PLASMA?PLEX [Concomitant]
     Active Substance: PLASMA PROTEIN FRACTION (HUMAN)
     Route: 065
     Dates: start: 201705
  6. CLONAZEPAM. [Suspect]
     Active Substance: CLONAZEPAM
     Indication: PRODUCT USED FOR UNKNOWN INDICATION
     Route: 065
  7. PROVIGIL [Concomitant]
     Active Substance: MODAFINIL
     Route: 065
  8. MOBIC [Concomitant]
     Active Substance: MELOXICAM
  9. VIMPAT [Concomitant]
     Active Substance: LACOSAMIDE
  10. TYSABRI [Suspect]
     Active Substance: NATALIZUMAB
     Indication: MULTIPLE SCLEROSIS
     Dosage: FOR 5 YEARS
     Route: 065
     Dates: start: 200612, end: 201209
  11. DALFAMPRIDINE. [Suspect]
     Active Substance: DALFAMPRIDINE
     Route: 065
     Dates: end: 201704
  12. LINZESS [Concomitant]
     Active Substance: LINACLOTIDE
  13. NEXIUM [Concomitant]
     Active Substance: ESOMEPRAZOLE MAGNESIUM
  14. PROZAC [Concomitant]
     Active Substance: FLUOXETINE HYDROCHLORIDE
     Route: 065
  15. FLUOXETINE [Concomitant]
     Active Substance: FLUOXETINE HYDROCHLORIDE
     Route: 065
  16. TYSABRI [Suspect]
     Active Substance: NATALIZUMAB
     Route: 065
     Dates: end: 201704
  17. ELAVIL [Concomitant]
     Active Substance: AMITRIPTYLINE HYDROCHLORIDE
     Route: 065
  18. VESICARE [Concomitant]
     Active Substance: SOLIFENACIN SUCCINATE
     Dosage: AS NEEDED
     Route: 065
  19. PRAVASTATIN. [Concomitant]
     Active Substance: PRAVASTATIN
     Route: 065
  20. OCREVUS [Suspect]
     Active Substance: OCRELIZUMAB
     Route: 042
     Dates: start: 201704
  21. OCREVUS [Suspect]
     Active Substance: OCRELIZUMAB
     Indication: MULTIPLE SCLEROSIS
     Route: 042
     Dates: start: 20170508
  22. TYSABRI [Suspect]
     Active Substance: NATALIZUMAB
     Dosage: FOR 3 YEARS
     Route: 065
     Dates: start: 20131212, end: 20170317
  23. LORTAB [Concomitant]
     Active Substance: ACETAMINOPHEN\HYDROCODONE BITARTRATE
     Dosage: AS NEEDED
     Route: 065
  24. KEPPRA [Concomitant]
     Active Substance: LEVETIRACETAM
  25. ACYCLOVIR. [Concomitant]
     Active Substance: ACYCLOVIR
  26. AMITRIPTYLINE [Concomitant]
     Active Substance: AMITRIPTYLINE
     Route: 065

REACTIONS (26)
  - Depressed level of consciousness [Unknown]
  - Brain oedema [Unknown]
  - Generalised tonic-clonic seizure [Recovered/Resolved]
  - Asthenia [Unknown]
  - Lethargy [Unknown]
  - Confusional state [Unknown]
  - Arteriosclerosis [Not Recovered/Not Resolved]
  - Multiple sclerosis [Unknown]
  - Brain herniation [Fatal]
  - Head injury [Unknown]
  - Malaise [Unknown]
  - Leukocytosis [Unknown]
  - Nausea [Unknown]
  - Urosepsis [Unknown]
  - Secondary progressive multiple sclerosis [Unknown]
  - Agitation [Unknown]
  - Vomiting [Unknown]
  - Toxic leukoencephalopathy [Fatal]
  - Aggression [Unknown]
  - Hypotension [Unknown]
  - Urinary tract infection [Unknown]
  - Postictal state [Unknown]
  - Mobility decreased [Unknown]
  - Incontinence [Unknown]
  - Respiratory failure [Unknown]
  - Psychotic disorder [Unknown]

NARRATIVE: CASE EVENT DATE: 201705
